FAERS Safety Report 25636768 (Version 1)
Quarter: 2025Q3

REPORT INFORMATION
  Report Type: Spontaneous
  Country: US (occurrence: US)
  Receive Date: 20250804
  Receipt Date: 20250804
  Transmission Date: 20251021
  Serious: No
  Sender: ROCHE
  Company Number: US-ROCHE-10000353285

PATIENT
  Sex: Female

DRUGS (4)
  1. ACTEMRA ACTPEN [Suspect]
     Active Substance: TOCILIZUMAB
     Indication: Sjogren^s syndrome
     Route: 058
     Dates: start: 202404
  2. TYVASO TD300 [TREPROSTINIL] [Concomitant]
  3. OFEV [Concomitant]
     Active Substance: NINTEDANIB
     Indication: Interstitial lung disease
     Dosage: IN THE MORNING
     Route: 048
  4. OFEV [Concomitant]
     Active Substance: NINTEDANIB
     Route: 048

REACTIONS (3)
  - Off label use [Unknown]
  - Mouth swelling [Recovering/Resolving]
  - Pain [Recovering/Resolving]
